FAERS Safety Report 11394350 (Version 1)
Quarter: 2015Q3

REPORT INFORMATION
  Report Type: Spontaneous
  Country: US (occurrence: None)
  Receive Date: 20150817
  Receipt Date: 20150817
  Transmission Date: 20151125
  Serious: Yes (Life-Threatening, Hospitalization, Disabling, Other)
  Sender: FDA-Public Use
  Company Number: None

PATIENT
  Age: 60 Year
  Sex: Male
  Weight: 68.04 kg

DRUGS (7)
  1. CIPRO [Suspect]
     Active Substance: CIPROFLOXACIN HYDROCHLORIDE
     Indication: URINARY TRACT INFECTION
     Route: 048
  2. ZOLOFT NORVASC [Concomitant]
  3. OXYCODONE [Concomitant]
     Active Substance: OXYCODONE
  4. BACTRIM [Concomitant]
     Active Substance: SULFAMETHOXAZOLE\TRIMETHOPRIM
     Indication: URINARY TRACT INFECTION
     Route: 048
  5. LIPITOR [Concomitant]
     Active Substance: ATORVASTATIN CALCIUM
  6. XANAX [Concomitant]
     Active Substance: ALPRAZOLAM
  7. TYLENOL [Concomitant]
     Active Substance: ACETAMINOPHEN

REACTIONS (12)
  - Traumatic lung injury [None]
  - Blister [None]
  - Onychomadesis [None]
  - Pain [None]
  - Nerve injury [None]
  - Skin injury [None]
  - Tooth fracture [None]
  - Joint injury [None]
  - Rash generalised [None]
  - Eye injury [None]
  - Tooth discolouration [None]
  - Burns second degree [None]

NARRATIVE: CASE EVENT DATE: 20121112
